FAERS Safety Report 16140670 (Version 1)
Quarter: 2019Q2

REPORT INFORMATION
  Report Type: Report from Study
  Country: LB (occurrence: LB)
  Receive Date: 20190401
  Receipt Date: 20190401
  Transmission Date: 20190711
  Serious: Yes (Hospitalization, Other)
  Sender: FDA-Public Use
  Company Number: LB-SA-2019SA087439

PATIENT
  Age: 48 Year
  Sex: Male

DRUGS (1)
  1. CLOPIDOGREL BISULFATE. [Suspect]
     Active Substance: CLOPIDOGREL BISULFATE
     Indication: ANGINA UNSTABLE
     Route: 048

REACTIONS (4)
  - Dyspnoea [Unknown]
  - Electrocardiogram ST segment depression [Recovering/Resolving]
  - Chest pain [Unknown]
  - Angina unstable [Recovering/Resolving]
